FAERS Safety Report 6366676-7 (Version None)
Quarter: 2009Q3

REPORT INFORMATION
  Report Type: 
  Country: None (occurrence: None)
  Receive Date: 20090921
  Receipt Date: 20090921
  Transmission Date: 20100115
  Serious: Yes (Other)
  Sender: FDA-Public Use
  Company Number: US-ABBOTT-09P-163-0596401-00

PATIENT
  Sex: Male
  Weight: 99.88 kg

DRUGS (5)
  1. DEPAKOTE ER [Suspect]
     Indication: EPILEPSY
     Route: 048
     Dates: start: 19790101, end: 19830101
  2. DEPAKOTE ER [Suspect]
     Route: 048
     Dates: start: 19830101, end: 20090101
  3. DEPAKOTE ER [Suspect]
     Route: 048
     Dates: start: 20090101, end: 20090301
  4. DEPAKOTE ER [Suspect]
     Route: 048
     Dates: start: 20090301, end: 20090909
  5. DEPAKOTE ER [Suspect]
     Dosage: IN DIVIDED DOSES
     Dates: start: 20090909

REACTIONS (6)
  - ANTICONVULSANT DRUG LEVEL DECREASED [None]
  - GRAND MAL CONVULSION [None]
  - PETIT MAL EPILEPSY [None]
  - PROSTATE CANCER [None]
  - PROSTATIC DISORDER [None]
  - TREMOR [None]
